FAERS Safety Report 9200707 (Version 3)
Quarter: 2013Q2

REPORT INFORMATION
  Report Type: Spontaneous
  Country: JP (occurrence: JP)
  Receive Date: 20130401
  Receipt Date: 20130423
  Transmission Date: 20140414
  Serious: Yes (Other)
  Sender: FDA-Public Use
  Company Number: JP-PFIZER INC-2013101967

PATIENT
  Age: 81 Year
  Sex: Female

DRUGS (1)
  1. CELECOX [Suspect]
     Indication: OSTEOARTHRITIS
     Dosage: 200 MG, DAILY
     Route: 048

REACTIONS (1)
  - Renal impairment [Unknown]
